FAERS Safety Report 4545215-7 (Version None)
Quarter: 2005Q1

REPORT INFORMATION
  Report Type: 
  Country: None (occurrence: None)
  Receive Date: 20050103
  Receipt Date: 20041216
  Transmission Date: 20050727
  Serious: Yes (Disabling)
  Sender: FDA-Public Use
  Company Number: 2004-BP-07495NB

PATIENT
  Age: 72 Year
  Sex: Male

DRUGS (4)
  1. PERSANTIN [Suspect]
     Indication: HYPERTENSION
     Dosage: 37.5 MG PO
     Route: 048
     Dates: start: 20000101, end: 20040801
  2. DIOVAN [Suspect]
     Indication: HYPERTENSION
     Dosage: PO
     Route: 048
     Dates: start: 20000101
  3. BEZAFIBRATE (BEZAFIBRATE) (TA) [Concomitant]
  4. ADALAT-CR (NIFEDIPINE) (TAD) [Concomitant]

REACTIONS (2)
  - INTERSTITIAL LUNG DISEASE [None]
  - OFF LABEL USE [None]
